FAERS Safety Report 7655894-3 (Version None)
Quarter: 2011Q3

REPORT INFORMATION
  Report Type: 
  Country: None (occurrence: None)
  Receive Date: 20110804
  Receipt Date: 20110804
  Transmission Date: 20111222
  Serious: Yes (Hospitalization)
  Sender: FDA-Public Use
  Company Number: None

PATIENT
  Age: 4 Month
  Sex: Male
  Weight: 4.0823 kg

DRUGS (1)
  1. HYLANDS TEETHING TABLETS (OTC) [Suspect]
     Indication: TEETHING
     Dates: start: 20100901, end: 20100923

REACTIONS (8)
  - UNRESPONSIVE TO STIMULI [None]
  - STARING [None]
  - PRODUCT QUALITY ISSUE [None]
  - CRYING [None]
  - LETHARGY [None]
  - HYPERHIDROSIS [None]
  - CONVULSION [None]
  - RESPIRATORY RATE DECREASED [None]
